FAERS Safety Report 7455059-4 (Version None)
Quarter: 2011Q2

REPORT INFORMATION
  Report Type: 
  Country: None (occurrence: None)
  Receive Date: 20110503
  Receipt Date: 20110421
  Transmission Date: 20111010
  Serious: Yes (Hospitalization)
  Sender: FDA-Public Use
  Company Number: CH-BRISTOL-MYERS SQUIBB COMPANY-15672900

PATIENT
  Age: 38 Year
  Sex: Female

DRUGS (6)
  1. SEROQUEL [Suspect]
     Dosage: 1DF= 25-200 MG DAILY
     Route: 048
     Dates: start: 20100922
  2. METHADONE [Suspect]
     Indication: DRUG DEPENDENCE
     Dosage: 22-23SEP10 35MG 24-27SEP10 50MG 28SEP-6OCT10 40MG 7OCT10-ONG 35MG
     Route: 048
     Dates: start: 20100922
  3. HEROIN [Suspect]
     Dosage: HEROIN 1 G ON TWO OCCASIONS IN A PERIOD FROM 13SEP10-20SEP10
     Dates: start: 20100901
  4. ABILIFY [Suspect]
     Indication: SCHIZOAFFECTIVE DISORDER DEPRESSIVE TYPE
     Dosage: THEREAFTER DOSE REDUCTION TO 5 MG DAILY (28SEP10-30SEP10) AND 2.5 MG DAILY (01OCT10-08OCT10).
     Route: 048
     Dates: start: 20100922, end: 20101008
  5. CIPRALEX [Suspect]
     Dosage: 22SEP-14OCT10 20MG 15OCT10-ONG 25MG
     Route: 048
     Dates: start: 20100922
  6. COCAINE [Suspect]
     Dates: start: 20100920

REACTIONS (3)
  - AKATHISIA [None]
  - WITHDRAWAL SYNDROME [None]
  - RESTLESSNESS [None]
